FAERS Safety Report 10066065 (Version 1)
Quarter: 2014Q2

REPORT INFORMATION
  Report Type: Spontaneous
  Country: US (occurrence: US)
  Receive Date: 20140408
  Receipt Date: 20140408
  Transmission Date: 20141212
  Serious: Yes (Other)
  Sender: FDA-Public Use
  Company Number: US-AMGEN-USASP2014024038

PATIENT
  Age: 55 Year
  Sex: Female
  Weight: 77.09 kg

DRUGS (1)
  1. NPLATE [Suspect]
     Indication: IMMUNE THROMBOCYTOPENIC PURPURA
     Dosage: UNK
     Route: 058
     Dates: start: 201309

REACTIONS (1)
  - Myelofibrosis [Recovering/Resolving]
